FAERS Safety Report 7264456-1 (Version None)
Quarter: 2011Q1

REPORT INFORMATION
  Report Type: 
  Country: None (occurrence: None)
  Receive Date: 20110131
  Receipt Date: 20110119
  Transmission Date: 20110831
  Serious: Yes (Life-Threatening, Hospitalization)
  Sender: FDA-Public Use
  Company Number: ES-JNJFOC-20110106247

PATIENT
  Age: 77 Year
  Sex: Male

DRUGS (3)
  1. TRAMADOL HYDROCHLORIDE [Suspect]
     Indication: BACK PAIN
     Route: 048
  2. LYRICA [Interacting]
     Indication: BACK PAIN
     Route: 048
  3. ZALDIAR [Suspect]
     Indication: BACK PAIN
     Route: 048

REACTIONS (3)
  - DRUG INTERACTION [None]
  - RESPIRATORY DEPRESSION [None]
  - DEPRESSED LEVEL OF CONSCIOUSNESS [None]
